FAERS Safety Report 8492196-X (Version None)
Quarter: 2012Q3

REPORT INFORMATION
  Report Type: 
  Country: None (occurrence: None)
  Receive Date: 20120706
  Receipt Date: 20120702
  Transmission Date: 20120928
  Serious: Yes (Other)
  Sender: FDA-Public Use
  Company Number: US-BAYER-2012-066284

PATIENT
  Age: 41 Year
  Sex: Female
  Weight: 106.12 kg

DRUGS (6)
  1. YASMIN [Suspect]
     Indication: CONTRACEPTION
     Dosage: UNK
  2. OMEPRAZOLE [Concomitant]
     Dosage: 20 MG, DAILY
     Route: 048
  3. NORTRIPTYLINE HCL [Concomitant]
     Dosage: 10 MG, UNK
     Route: 048
  4. PRILOSEC [Concomitant]
  5. ACETAMINOPHEN [Concomitant]
     Indication: PAIN
  6. CLOBETASOL PROPIONATE [Concomitant]

REACTIONS (1)
  - DEEP VEIN THROMBOSIS [None]
